FAERS Safety Report 7644692-2 (Version None)
Quarter: 2011Q3

REPORT INFORMATION
  Report Type: 
  Country: None (occurrence: None)
  Receive Date: 20110725
  Receipt Date: 20110714
  Transmission Date: 20111222
  Serious: Yes (Hospitalization, Other)
  Sender: FDA-Public Use
  Company Number: 983070

PATIENT
  Sex: Female

DRUGS (3)
  1. ACYCLOVIR [Suspect]
     Indication: INFECTIOUS MONONUCLEOSIS
  2. (CENTRUM /00554501/) [Suspect]
     Indication: PRODUCT USED FOR UNKNOWN INDICATION
  3. (COD LIVER OIL) [Suspect]
     Indication: PRODUCT USED FOR UNKNOWN INDICATION

REACTIONS (2)
  - EPSTEIN-BARR VIRUS INFECTION [None]
  - CONVULSION [None]
